FAERS Safety Report 21696554 (Version 1)
Quarter: 2022Q4

REPORT INFORMATION
  Report Type: Spontaneous
  Country: JP (occurrence: JP)
  Receive Date: 20221207
  Receipt Date: 20221207
  Transmission Date: 20230112
  Serious: Yes (Hospitalization, Other)
  Sender: FDA-Public Use
  Company Number: JP-SA-2022SA484642

PATIENT
  Age: 85 Year
  Sex: Female

DRUGS (1)
  1. KEVZARA [Suspect]
     Active Substance: SARILUMAB
     Indication: Rheumatic disorder
     Dosage: 200 MG, QOW
     Route: 058

REACTIONS (2)
  - Hip fracture [Not Recovered/Not Resolved]
  - Fall [Unknown]

NARRATIVE: CASE EVENT DATE: 20221105
